FAERS Safety Report 19911448 (Version 1)
Quarter: 2021Q4

REPORT INFORMATION
  Report Type: Spontaneous
  Country: US (occurrence: US)
  Receive Date: 20211001
  Receipt Date: 20211001
  Transmission Date: 20220303
  Serious: Yes (Disabling)
  Sender: FDA-Public Use
  Company Number: None

PATIENT
  Age: 4 Year
  Sex: Male
  Weight: 17.1 kg

DRUGS (6)
  1. DULERA [Suspect]
     Active Substance: FORMOTEROL FUMARATE DIHYDRATE\MOMETASONE FUROATE
     Indication: Asthma
     Dosage: ?          QUANTITY:2 PUFF(S);
     Route: 055
     Dates: start: 20210924
  2. ALBUTEROL [Concomitant]
     Active Substance: ALBUTEROL
  3. CHILDREN CLARITIN ALLERGY [Concomitant]
     Active Substance: LORATADINE
  4. FLONASE SENSIMIST ALLERGY RELIEF [Concomitant]
     Active Substance: FLUTICASONE FUROATE
  5. DIETARY SUPPLEMENT [Concomitant]
     Active Substance: DIETARY SUPPLEMENT
  6. RED AND GREEN GUMMIES [Concomitant]

REACTIONS (6)
  - Oropharyngeal pain [None]
  - Pain in extremity [None]
  - Pollakiuria [None]
  - Thirst [None]
  - Initial insomnia [None]
  - Blood potassium decreased [None]

NARRATIVE: CASE EVENT DATE: 20210930
